FAERS Safety Report 8429400-X (Version None)
Quarter: 2012Q2

REPORT INFORMATION
  Report Type: 
  Country: None (occurrence: None)
  Receive Date: 20120612
  Receipt Date: 20120604
  Transmission Date: 20120825
  Serious: No
  Sender: FDA-Public Use
  Company Number: US-B.I. PHARMACEUTICALS,INC./RIDGEFIELD-2012-BP-09471BP

PATIENT
  Sex: Male
  Weight: 73.48 kg

DRUGS (10)
  1. DIGOXIN [Concomitant]
  2. ASPIRIN [Concomitant]
  3. CARVEDILOL [Concomitant]
     Indication: CARDIAC FAILURE
     Dosage: 5 MG
     Route: 048
  4. LIPITOR [Concomitant]
  5. COZAAR [Concomitant]
  6. PRADAXA [Suspect]
     Indication: ATRIAL FIBRILLATION
     Dosage: 300 MG
     Route: 048
     Dates: start: 20111026
  7. IMDUR [Concomitant]
  8. LASIX [Concomitant]
  9. COREG [Concomitant]
  10. VITAMIN D [Concomitant]

REACTIONS (1)
  - THROMBOSIS [None]
